FAERS Safety Report 20058147 (Version 1)
Quarter: 2021Q4

REPORT INFORMATION
  Report Type: Spontaneous
  Country: JP (occurrence: JP)
  Receive Date: 20211111
  Receipt Date: 20211111
  Transmission Date: 20220303
  Serious: Yes (Other)
  Sender: FDA-Public Use
  Company Number: JP-PFIZER INC-202101528980

PATIENT
  Age: 90 Year
  Sex: Female

DRUGS (2)
  1. BILASTINE [Suspect]
     Active Substance: BILASTINE
     Dosage: UNK
     Route: 048
     Dates: start: 202107, end: 202109
  2. AMLODIPINE BESYLATE [Suspect]
     Active Substance: AMLODIPINE BESYLATE
     Dosage: UNK
     Route: 048
     Dates: start: 202107

REACTIONS (2)
  - Gingival pain [Recovering/Resolving]
  - Stomatitis [Recovering/Resolving]
